FAERS Safety Report 8222024 (Version 3)
Quarter: 2013Q1

REPORT INFORMATION
  Report Type: Spontaneous
  Country: CA (occurrence: CA)
  Receive Date: 20111102
  Receipt Date: 20130225
  Transmission Date: 20140127
  Serious: Yes (Other)
  Sender: FDA-Public Use
  Company Number: CA-JNJFOC-20111011602

PATIENT
  Age: 41 Year
  Sex: Female
  Weight: 75.8 kg

DRUGS (7)
  1. REMICADE [Suspect]
     Indication: COLITIS ULCERATIVE
     Dosage: 1ST LOADING DOSE
     Route: 042
  2. REMICADE [Suspect]
     Indication: COLITIS ULCERATIVE
     Dosage: 1ST LOADING DOSE
     Route: 042
     Dates: start: 20111021
  3. IMURAN [Suspect]
     Indication: PRODUCT USED FOR UNKNOWN INDICATION
     Route: 065
  4. CELEXA [Concomitant]
  5. IRON [Concomitant]
  6. PREDNISONE [Concomitant]
  7. UNSPECIFIED BIRTH CONTROL [Concomitant]

REACTIONS (4)
  - Vomiting [Unknown]
  - Hypersensitivity [Unknown]
  - Diarrhoea [Unknown]
  - Nausea [Unknown]
